FAERS Safety Report 21396626 (Version 8)
Quarter: 2023Q1

REPORT INFORMATION
  Report Type: Spontaneous
  Country: CA (occurrence: CA)
  Receive Date: 20220930
  Receipt Date: 20230316
  Transmission Date: 20230417
  Serious: Yes (Other)
  Sender: FDA-Public Use
  Company Number: CA-PFIZER INC-202200120054

PATIENT
  Age: 51 Year
  Sex: Female
  Weight: 55 kg

DRUGS (27)
  1. RUXIENCE [Suspect]
     Active Substance: RITUXIMAB-PVVR
     Indication: Neuromyelitis optica spectrum disorder
     Dosage: 1 G 1 GRAM INFUSIONS IN PAIRED DOSE 2 WEEKS APART
     Route: 042
     Dates: start: 20220225, end: 20220311
  2. RUXIENCE [Suspect]
     Active Substance: RITUXIMAB-PVVR
     Dosage: 2 G, EVERY 6 MONTHS
     Route: 042
  3. RUXIENCE [Suspect]
     Active Substance: RITUXIMAB-PVVR
     Dosage: 1000 MG,DAY1 AND DAY 15 EVERY 6 MONTHS
     Route: 042
     Dates: start: 20220225
  4. RUXIENCE [Suspect]
     Active Substance: RITUXIMAB-PVVR
     Dosage: 1000 MG,DAY1 AND DAY 15 EVERY 6 MONTHS
     Route: 042
     Dates: start: 20220225
  5. RUXIENCE [Suspect]
     Active Substance: RITUXIMAB-PVVR
     Dosage: 1000 MG,DAY1 AND DAY 15 EVERY 6 MONTHS
     Route: 042
     Dates: start: 20220225
  6. RUXIENCE [Suspect]
     Active Substance: RITUXIMAB-PVVR
     Dosage: 500 MG
     Route: 042
     Dates: start: 20220225
  7. RUXIENCE [Suspect]
     Active Substance: RITUXIMAB-PVVR
     Dosage: 500 MG
     Route: 042
     Dates: start: 20220225
  8. RUXIENCE [Suspect]
     Active Substance: RITUXIMAB-PVVR
     Dosage: 1000 MG,DAY1 AND DAY 15 EVERY 6 MONTHS
     Route: 042
     Dates: start: 20220311
  9. RUXIENCE [Suspect]
     Active Substance: RITUXIMAB-PVVR
     Dosage: 1 G 1 GRAM INFUSIONS IN PAIRED DOSE 2 WEEKS APART
     Route: 042
     Dates: start: 20220912, end: 20220926
  10. RUXIENCE [Suspect]
     Active Substance: RITUXIMAB-PVVR
     Dosage: 1 G 1 GRAM INFUSIONS IN PAIRED DOSE 2 WEEKS APART
     Route: 042
     Dates: start: 20220926, end: 20220926
  11. RUXIENCE [Suspect]
     Active Substance: RITUXIMAB-PVVR
     Dosage: 1000 MG,DAY1 AND DAY 15 EVERY 6 MONTHS
     Route: 042
     Dates: start: 20220926
  12. RUXIENCE [Suspect]
     Active Substance: RITUXIMAB-PVVR
     Dosage: 2 G, 2 WEEKS APART, EVERY 6 MONTH
     Route: 042
  13. ACETAMINOPHEN [Concomitant]
     Active Substance: ACETAMINOPHEN
     Indication: Premedication
     Dosage: 650 MG
     Route: 048
     Dates: start: 20220225, end: 20220225
  14. ACETAMINOPHEN [Concomitant]
     Active Substance: ACETAMINOPHEN
     Dosage: 650 MG
     Route: 048
     Dates: start: 20220311, end: 20220311
  15. ACETAMINOPHEN [Concomitant]
     Active Substance: ACETAMINOPHEN
     Dosage: 1000 MG
     Route: 048
     Dates: start: 20220926, end: 20220926
  16. BACLOFEN [Concomitant]
     Active Substance: BACLOFEN
     Dosage: 30 MG
     Route: 048
     Dates: start: 20211201
  17. CARBAMAZEPINE [Concomitant]
     Active Substance: CARBAMAZEPINE
     Dosage: 400 MG
     Route: 048
     Dates: start: 20211201
  18. DIPHENHYDRAMINE [Concomitant]
     Active Substance: DIPHENHYDRAMINE
     Indication: Premedication
     Dosage: 50 MG
     Route: 048
     Dates: start: 20220225, end: 20220225
  19. DIPHENHYDRAMINE [Concomitant]
     Active Substance: DIPHENHYDRAMINE
     Dosage: 50 MG
     Route: 048
     Dates: start: 20220311, end: 20220311
  20. DIPHENHYDRAMINE [Concomitant]
     Active Substance: DIPHENHYDRAMINE
     Dosage: 50 MG
     Route: 048
     Dates: start: 20220926, end: 20220926
  21. GABAPENTIN [Concomitant]
     Active Substance: GABAPENTIN
     Dosage: 900 MG
     Route: 048
     Dates: start: 20211201
  22. LANSOPRAZOLE [Concomitant]
     Active Substance: LANSOPRAZOLE
     Dosage: 300 MG
     Route: 048
     Dates: start: 20211201
  23. METHYLPREDNISOLONE [Concomitant]
     Active Substance: METHYLPREDNISOLONE
     Indication: Premedication
     Dosage: 100 MG
     Route: 042
     Dates: start: 20220225, end: 20220225
  24. METHYLPREDNISOLONE [Concomitant]
     Active Substance: METHYLPREDNISOLONE
     Dosage: 100 MG
     Route: 042
     Dates: start: 20220311, end: 20220311
  25. METHYLPREDNISOLONE [Concomitant]
     Active Substance: METHYLPREDNISOLONE
     Dosage: 100 MG
     Route: 042
     Dates: start: 20220926, end: 20220926
  26. SENOKOT [Concomitant]
     Active Substance: SENNOSIDES
     Dosage: 8.6 MG
     Route: 048
     Dates: start: 20211231
  27. TAMSULOSIN [Concomitant]
     Active Substance: TAMSULOSIN
     Dosage: 0.4 MG
     Route: 048
     Dates: start: 20211201

REACTIONS (8)
  - Bradycardia [Unknown]
  - Off label use [Unknown]
  - Blood pressure fluctuation [Unknown]
  - Heart rate decreased [Unknown]
  - Bladder catheterisation [Unknown]
  - Sleep disorder [Unknown]
  - Blood pressure decreased [Unknown]
  - Feeling abnormal [Unknown]

NARRATIVE: CASE EVENT DATE: 20220225
